FAERS Safety Report 25506555 (Version 1)
Quarter: 2025Q3

REPORT INFORMATION
  Report Type: Spontaneous
  Country: US (occurrence: US)
  Receive Date: 20250702
  Receipt Date: 20250702
  Transmission Date: 20251021
  Serious: Yes (Other)
  Sender: GENMAB
  Company Number: US-GENMAB-2025-01093

PATIENT
  Sex: Male

DRUGS (1)
  1. EPKINLY [Suspect]
     Active Substance: EPCORITAMAB-BYSP
     Indication: Diffuse large B-cell lymphoma
     Route: 065

REACTIONS (3)
  - Immune effector cell-associated neurotoxicity syndrome [Unknown]
  - Cytokine release syndrome [Unknown]
  - Urticaria [Unknown]
